FAERS Safety Report 4778053-0 (Version None)
Quarter: 2005Q3

REPORT INFORMATION
  Report Type: 
  Country: None (occurrence: None)
  Receive Date: 20050921
  Receipt Date: 20050713
  Transmission Date: 20060218
  Serious: Yes (Disabling, Other)
  Sender: FDA-Public Use
  Company Number: SP00448

PATIENT
  Age: 33 Year
  Sex: Female
  Weight: 54.4316 kg

DRUGS (11)
  1. XIFAXAN [Suspect]
     Indication: CROHN'S DISEASE
     Dosage: 200MG/TID, ORAL
     Route: 048
     Dates: start: 20050501, end: 20050501
  2. XIFAXAN [Suspect]
     Indication: CROHN'S DISEASE
     Dosage: 200MG/TID, ORAL
     Route: 048
     Dates: start: 20050611, end: 20050612
  3. HERBAL MEDICATIONS [Concomitant]
  4. B12 [Concomitant]
  5. VITAL NUTRI GREENS [Concomitant]
  6. CAL-MAG [Concomitant]
  7. ZINC PLUS [Concomitant]
  8. ACIDOPHILUS [Concomitant]
  9. COD LIVER OIL [Concomitant]
  10. ALOE VERA JUICE [Concomitant]
  11. BERRY YOUNG JUICE [Concomitant]

REACTIONS (2)
  - FACIAL PALSY [None]
  - PARAESTHESIA [None]
